FAERS Safety Report 4831048-0 (Version None)
Quarter: 2005Q4

REPORT INFORMATION
  Report Type: 
  Country: None (occurrence: None)
  Receive Date: 20051115
  Receipt Date: 20051115
  Transmission Date: 20060501
  Serious: Yes (Hospitalization)
  Sender: FDA-Public Use
  Company Number: None

PATIENT
  Age: 66 Year
  Sex: Female
  Weight: 79 kg

DRUGS (10)
  1. CARBOPLATIN [Suspect]
     Indication: PERITONEAL CARCINOMA
     Dosage: 622MG IV Q3 WEEKS
     Route: 042
     Dates: start: 20050826, end: 20051102
  2. TAXOTERE [Suspect]
     Indication: PERITONEAL CARCINOMA
     Dosage: 149MG IV Q3 WEEKS
     Route: 042
     Dates: start: 20050826, end: 20051102
  3. MAXZIDE [Concomitant]
  4. LIPITOR [Concomitant]
  5. PROTONIX [Concomitant]
  6. GLUCOPHAGE [Concomitant]
  7. COZAAR [Concomitant]
  8. ZOFRAN [Concomitant]
  9. CYMBALTA [Concomitant]
  10. LANTUS [Concomitant]

REACTIONS (13)
  - ABDOMINAL PAIN [None]
  - ASTHENIA [None]
  - BODY TEMPERATURE DECREASED [None]
  - BRONCHITIS [None]
  - COLD SWEAT [None]
  - DYSURIA [None]
  - FATIGUE [None]
  - FLANK PAIN [None]
  - ORAL INTAKE REDUCED [None]
  - PITTING OEDEMA [None]
  - PRODUCTIVE COUGH [None]
  - PYREXIA [None]
  - TACHYCARDIA [None]
